FAERS Safety Report 8612660-X (Version None)
Quarter: 2012Q3

REPORT INFORMATION
  Report Type: 
  Country: None (occurrence: None)
  Receive Date: 20120822
  Receipt Date: 20110922
  Transmission Date: 20120928
  Serious: No
  Sender: FDA-Public Use
  Company Number: US-ASTRAZENECA-2011SE57306

PATIENT
  Age: 44 Year
  Sex: Female
  Weight: 59 kg

DRUGS (3)
  1. SERTRALINE HYDROCHLORIDE [Concomitant]
  2. VENTOLIN [Concomitant]
  3. SYMBICORT [Suspect]
     Indication: ASTHMA
     Dosage: TWO PUFFS TWICE DAILY
     Route: 055
     Dates: start: 20070101

REACTIONS (2)
  - DYSPNOEA [None]
  - DRUG INEFFECTIVE [None]
